FAERS Safety Report 20855614 (Version 4)
Quarter: 2022Q3

REPORT INFORMATION
  Report Type: Spontaneous
  Country: CZ (occurrence: CZ)
  Receive Date: 20220520
  Receipt Date: 20220715
  Transmission Date: 20221027
  Serious: Yes (Disabling, Other)
  Sender: FDA-Public Use
  Company Number: CZ-002147023-NVSC2022CZ101941

PATIENT
  Age: 23 Year
  Sex: Male

DRUGS (5)
  1. OLANZAPINE [Suspect]
     Active Substance: OLANZAPINE
     Indication: Schizophrenia
     Dosage: UNK
     Route: 065
  2. OLANZAPINE [Suspect]
     Active Substance: OLANZAPINE
     Indication: Restlessness
  3. OLANZAPINE [Suspect]
     Active Substance: OLANZAPINE
     Indication: Aggression
  4. OLANZAPINE [Suspect]
     Active Substance: OLANZAPINE
     Indication: Hallucination, auditory
  5. RISPERIDONE [Suspect]
     Active Substance: RISPERIDONE
     Indication: Schizophrenia
     Dosage: UNK
     Route: 065

REACTIONS (5)
  - Sedation complication [Recovered/Resolved]
  - Weight increased [Recovering/Resolving]
  - Galactorrhoea [Recovered/Resolved]
  - Hyperprolactinaemia [Unknown]
  - Intentional product misuse [Unknown]
